FAERS Safety Report 5979004-3 (Version None)
Quarter: 2008Q4

REPORT INFORMATION
  Report Type: 
  Country: None (occurrence: None)
  Receive Date: 20081204
  Receipt Date: 20081125
  Transmission Date: 20090506
  Serious: Yes (Hospitalization)
  Sender: FDA-Public Use
  Company Number: DE-ROCHE-578895

PATIENT
  Sex: Female
  Weight: 57.3 kg

DRUGS (19)
  1. METHOXY POLYETHYLENE GLYCOL-EPOETIN BETA [Suspect]
     Dosage: FORM: PRE FILLED SYRINGE. BATCH NO: H0004H01/MH8251305
     Route: 042
     Dates: start: 20080207
  2. METHOXY POLYETHYLENE GLYCOL-EPOETIN BETA [Suspect]
     Dosage: BATCH NUMBER: H0004H01; RECEIVED SAME DOSE ON 10 APRIL 2008
     Route: 042
     Dates: start: 20080306
  3. METHOXY POLYETHYLENE GLYCOL-EPOETIN BETA [Suspect]
     Dosage: H0004H01, MH8251305
     Route: 042
     Dates: start: 20080508
  4. ARANESP [Concomitant]
     Dates: start: 20071002, end: 20080207
  5. FOLIC ACID [Concomitant]
     Dates: start: 20050124
  6. FERRLECIT [Concomitant]
     Dates: start: 20071206, end: 20080614
  7. FERRLECIT [Concomitant]
     Dates: start: 20080615
  8. TEMAZEPAM [Concomitant]
     Dosage: TDD: AD LIB
     Dates: start: 19970128
  9. VITARENAL [Concomitant]
     Dosage: UNIT: DRG.
     Dates: start: 20000819
  10. OXYGESIC [Concomitant]
     Dates: start: 20040923
  11. HALOPERIDOL [Concomitant]
     Dates: start: 20040923
  12. BISOPROLOL FUMARATE [Concomitant]
     Dates: start: 20041211
  13. SIMVASTATIN [Concomitant]
     Dates: start: 20050125
  14. PHOSPHORUS [Concomitant]
     Dosage: TDD: AD LIBS
     Dates: start: 20070717
  15. MIMPARA [Concomitant]
     Dates: start: 20071026, end: 20080516
  16. MIMPARA [Concomitant]
     Dates: start: 20080517
  17. CALCITRIOL [Concomitant]
     Dates: start: 20080307, end: 20080508
  18. CALCITRIOL [Concomitant]
     Dates: start: 20080509
  19. BICA NORM [Concomitant]
     Dates: start: 20070821

REACTIONS (1)
  - SHUNT THROMBOSIS [None]
